FAERS Safety Report 24970774 (Version 1)
Quarter: 2025Q1

REPORT INFORMATION
  Report Type: Spontaneous
  Country: US (occurrence: US)
  Receive Date: 20250214
  Receipt Date: 20250214
  Transmission Date: 20250409
  Serious: No
  Sender: AMGEN
  Company Number: US-AMGEN-USASP2025025528

PATIENT
  Age: 82 Year
  Sex: Female

DRUGS (1)
  1. PROLIA [Suspect]
     Active Substance: DENOSUMAB
     Indication: Osteoporosis
     Dosage: 60 MILLIGRAM, Q6MO
     Route: 058
     Dates: start: 20240129

REACTIONS (6)
  - Chest discomfort [Recovered/Resolved]
  - Breast pain [Recovered/Resolved]
  - Pain [Recovered/Resolved]
  - Tongue haemorrhage [Recovered/Resolved]
  - Swollen tongue [Unknown]
  - Tongue biting [Unknown]

NARRATIVE: CASE EVENT DATE: 20240101
